FAERS Safety Report 4572403-6 (Version None)
Quarter: 2005Q1

REPORT INFORMATION
  Report Type: 
  Country: None (occurrence: None)
  Receive Date: 20050207
  Receipt Date: 20040625
  Transmission Date: 20050727
  Serious: Yes (Other)
  Sender: FDA-Public Use
  Company Number: US-GLAXOSMITHKLINE-A0516414A

PATIENT
  Age: 36 Year
  Sex: Female

DRUGS (5)
  1. COMBIVIR [Suspect]
     Indication: HIV INFECTION
     Route: 048
     Dates: start: 20040401
  2. KALETRA [Concomitant]
     Indication: HIV INFECTION
     Dosage: 6TAB PER DAY
     Route: 048
     Dates: start: 20040401
  3. PRENATAL VITAMINS [Concomitant]
     Dosage: 1TAB PER DAY
  4. BACTRIM [Concomitant]
     Dosage: 1TAB PER DAY
  5. AZITHROMYCIN [Concomitant]

REACTIONS (2)
  - DRUG EXPOSURE DURING PREGNANCY [None]
  - STILLBIRTH [None]
